FAERS Safety Report 16271311 (Version 1)
Quarter: 2019Q2

REPORT INFORMATION
  Report Type: Spontaneous
  Country: US (occurrence: US)
  Receive Date: 20190503
  Receipt Date: 20190503
  Transmission Date: 20190711
  Serious: Yes (Other)
  Sender: FDA-Public Use
  Company Number: US-LEXICON PHARMACEUTICALS, INC-19-1606-00493

PATIENT
  Sex: Female

DRUGS (21)
  1. TELOTRISTAT ETHYL [Suspect]
     Active Substance: TELOTRISTAT ETHYL
     Indication: CARCINOID SYNDROME
     Route: 048
     Dates: start: 20180328
  2. METFORMIN [Concomitant]
     Active Substance: METFORMIN HYDROCHLORIDE
  3. LEVOTHYROXIN [Concomitant]
     Active Substance: LEVOTHYROXINE
  4. LOPERAMIDE [Concomitant]
     Active Substance: LOPERAMIDE
  5. LANTUS [Concomitant]
     Active Substance: INSULIN GLARGINE
  6. BABY ASPIRIN [Concomitant]
     Active Substance: ASPIRIN
  7. METOPROLOL SUCCINATE ER [Concomitant]
     Active Substance: METOPROLOL SUCCINATE
  8. PREDNISONE. [Concomitant]
     Active Substance: PREDNISONE
  9. BENADRYL [Concomitant]
     Active Substance: DIPHENHYDRAMINE HYDROCHLORIDE
  10. SOMATULINE DEPOT [Concomitant]
     Active Substance: LANREOTIDE ACETATE
     Dosage: 90 MG / 0.3 ML
     Route: 058
  11. OMEGA 3 [Concomitant]
     Active Substance: OMEGA-3 FATTY ACIDS
  12. KEYTRUDA [Concomitant]
     Active Substance: PEMBROLIZUMAB
     Dosage: 100 MG / 4 ML
     Dates: end: 2018
  13. PRASUGREL. [Concomitant]
     Active Substance: PRASUGREL
  14. NORVASC [Concomitant]
     Active Substance: AMLODIPINE BESYLATE
  15. VITAMIN B COMPLEX [Concomitant]
     Active Substance: CYANOCOBALAMIN\DEXPANTHENOL\NIACINAMIDE\PYRIDOXINE HYDROCHLORIDE\RIBOFLAVIN 5^-PHOSPHATE SODIUM\THIAMINE HYDROCHLORIDE\VITAMIN B COMPLEX
  16. ESTER-C [Concomitant]
  17. LOMOTIL [Concomitant]
     Active Substance: ATROPINE SULFATE\DIPHENOXYLATE HYDROCHLORIDE
  18. LISINOPRIL. [Concomitant]
     Active Substance: LISINOPRIL
  19. LORAZEPAM. [Concomitant]
     Active Substance: LORAZEPAM
  20. KEYTRUDA [Concomitant]
     Active Substance: PEMBROLIZUMAB
     Dosage: 25 MG/ML 200 MG 30 MINUTE IV INFUSION MONTHLY
     Route: 042
     Dates: start: 20171017
  21. INSULIN [Concomitant]
     Active Substance: INSULIN NOS

REACTIONS (2)
  - Malaise [Unknown]
  - Disease progression [Unknown]
